FAERS Safety Report 22028152 (Version 1)
Quarter: 2023Q1

REPORT INFORMATION
  Report Type: Spontaneous
  Country: US (occurrence: US)
  Receive Date: 20230223
  Receipt Date: 20230223
  Transmission Date: 20230418
  Serious: Yes (Hospitalization, Other)
  Sender: FDA-Public Use
  Company Number: US-MYLANLABS-2023M1020550

PATIENT
  Age: 37 Year
  Sex: Female

DRUGS (9)
  1. COLCHICINE [Suspect]
     Active Substance: COLCHICINE
     Indication: Pericarditis
     Dosage: 0.6 MILLIGRAM, BID
     Route: 065
     Dates: start: 201508
  2. COLCHICINE [Suspect]
     Active Substance: COLCHICINE
     Dosage: UNK;  INITIALLY CONTINUED AND UNKNOWN FURTHER
     Route: 065
  3. IBUPROFEN [Suspect]
     Active Substance: IBUPROFEN
     Indication: Pericarditis
     Dosage: 400 MILLIGRAM, TID; THREE TIMES DAILY
     Route: 065
     Dates: start: 201508
  4. IBUPROFEN [Suspect]
     Active Substance: IBUPROFEN
     Dosage: UNK; INITIALLY CONTINUED AND UNKNOWN FURTHER
     Route: 065
  5. PREDNISONE [Suspect]
     Active Substance: PREDNISONE
     Indication: Pericarditis
     Dosage: 20 MILLIGRAM
     Route: 065
     Dates: start: 201508
  6. PREDNISONE [Suspect]
     Active Substance: PREDNISONE
     Dosage: CONTINUED ON PREDNISONE TAPER
     Route: 065
  7. ANAKINRA [Concomitant]
     Active Substance: ANAKINRA
     Indication: Pericarditis
     Dosage: UNK UNK, QD
     Route: 065
     Dates: start: 201609
  8. ANAKINRA [Concomitant]
     Active Substance: ANAKINRA
     Dosage: UNK; DOSE REDUCED
     Route: 065
  9. ANAKINRA [Concomitant]
     Active Substance: ANAKINRA
     Dosage: UNK UNK, QD (DOSE INCREASED TO ONCE DAILY AGAIN)
     Route: 065

REACTIONS (2)
  - Steroid dependence [Unknown]
  - Drug ineffective [Unknown]
